FAERS Safety Report 20606525 (Version 1)
Quarter: 2022Q1

REPORT INFORMATION
  Report Type: Spontaneous
  Country: US (occurrence: None)
  Receive Date: 20220316
  Receipt Date: 20220316
  Transmission Date: 20220424
  Serious: No
  Sender: FDA-Public Use
  Company Number: None

PATIENT
  Age: 42 Year
  Weight: 47.25 kg

DRUGS (4)
  1. SECRET ANTIPERSPIRANT NOS [Suspect]
     Active Substance: ALUMINUM CHLOROHYDRATE OR ALUMINUM ZIRCONIUM TETRACHLOROHYDREX GLY
     Dates: start: 20220101, end: 20220215
  2. SUBOXONE [Concomitant]
     Active Substance: BUPRENORPHINE HYDROCHLORIDE\NALOXONE HYDROCHLORIDE
  3. ZOLOFT [Concomitant]
     Active Substance: SERTRALINE HYDROCHLORIDE
  4. abilfy [Concomitant]

REACTIONS (3)
  - Application site pruritus [None]
  - Rash [None]
  - Application site erythema [None]

NARRATIVE: CASE EVENT DATE: 20220120
